FAERS Safety Report 13889352 (Version 1)
Quarter: 2017Q3

REPORT INFORMATION
  Report Type: Spontaneous
  Country: FR (occurrence: FR)
  Receive Date: 20170821
  Receipt Date: 20170821
  Transmission Date: 20171127
  Serious: Yes (Death, Hospitalization, Other)
  Sender: FDA-Public Use
  Company Number: FR-IMPAX LABORATORIES, INC-2017-IPXL-02436

PATIENT
  Sex: Male

DRUGS (3)
  1. HYDROCORTISONE. [Suspect]
     Active Substance: HYDROCORTISONE
     Indication: NEONATAL RESPIRATORY DISTRESS SYNDROME
     Dosage: UNK, LOW DOSES
     Route: 065
  2. AMOXICILLIN. [Concomitant]
     Active Substance: AMOXICILLIN
     Indication: NEONATAL INFECTION
     Dosage: UNK
     Route: 065
  3. AMIKACIN [Concomitant]
     Active Substance: AMIKACIN
     Indication: NEONATAL INFECTION
     Dosage: UNK
     Route: 065

REACTIONS (3)
  - Premature baby death [Fatal]
  - Aspergillus infection [Unknown]
  - Multiple organ dysfunction syndrome [Fatal]
